FAERS Safety Report 17255290 (Version 1)
Quarter: 2020Q1

REPORT INFORMATION
  Report Type: Spontaneous
  Country: US (occurrence: US)
  Receive Date: 20200110
  Receipt Date: 20200110
  Transmission Date: 20200409
  Serious: No
  Sender: FDA-Public Use
  Company Number: US-TEVA-2020-US-1165539

PATIENT
  Sex: Female

DRUGS (1)
  1. WATSON LORAZEPAM [Suspect]
     Active Substance: LORAZEPAM
     Dosage: FORM STRENGTH : UNKNOWN
     Route: 065
     Dates: start: 1999

REACTIONS (1)
  - Drug intolerance [Unknown]

NARRATIVE: CASE EVENT DATE: 1999
